FAERS Safety Report 5369479-5 (Version None)
Quarter: 2007Q2

REPORT INFORMATION
  Report Type: 
  Country: None (occurrence: None)
  Receive Date: 20070620
  Receipt Date: 20070608
  Transmission Date: 20071010
  Serious: Yes (Death, Hospitalization, Other)
  Sender: FDA-Public Use
  Company Number: 200711630GDDC

PATIENT
  Age: 42 Year
  Sex: Male
  Weight: 51 kg

DRUGS (2)
  1. CISPLATIN [Suspect]
     Indication: NEOPLASM MALIGNANT
     Dosage: 100 MG/M**2 IV
     Route: 042
     Dates: start: 20060920, end: 20061102
  2. FLUOROURACIL [Suspect]
     Indication: NEOPLASM MALIGNANT
     Dosage: 1000 MG IV
     Route: 042
     Dates: start: 20060920, end: 20061102

REACTIONS (19)
  - ALANINE AMINOTRANSFERASE INCREASED [None]
  - APLASIA [None]
  - ASPARTATE AMINOTRANSFERASE INCREASED [None]
  - BACTERIURIA [None]
  - BLOOD UREA INCREASED [None]
  - BRADYPHRENIA [None]
  - CACHEXIA [None]
  - CATHETER RELATED COMPLICATION [None]
  - DISEASE PROGRESSION [None]
  - INJURY [None]
  - INTERVERTEBRAL DISC PROTRUSION [None]
  - KLEBSIELLA BACTERAEMIA [None]
  - METASTASES TO MENINGES [None]
  - NECK PAIN [None]
  - NEOPLASM PROGRESSION [None]
  - NO THERAPEUTIC RESPONSE [None]
  - NUCLEAR MAGNETIC RESONANCE IMAGING BRAIN ABNORMAL [None]
  - PYREXIA [None]
  - SOMNOLENCE [None]
